FAERS Safety Report 5015218-7 (Version None)
Quarter: 2006Q2

REPORT INFORMATION
  Report Type: 
  Country: None (occurrence: None)
  Receive Date: 20060426
  Receipt Date: 20060315
  Transmission Date: 20061013
  Serious: No
  Sender: FDA-Public Use
  Company Number: 223089

PATIENT
  Age: 68 Year
  Sex: Male

DRUGS (1)
  1. XOLAIR [Suspect]
     Indication: PEMPHIGUS
     Dates: start: 20050201, end: 20050515

REACTIONS (2)
  - BLOOD IMMUNOGLOBULIN E INCREASED [None]
  - PAIN [None]
